FAERS Safety Report 6732256-4 (Version None)
Quarter: 2010Q2

REPORT INFORMATION
  Report Type: 
  Country: None (occurrence: None)
  Receive Date: 20100519
  Receipt Date: 20100510
  Transmission Date: 20101027
  Serious: Yes (Hospitalization, Congenital Anomaly)
  Sender: FDA-Public Use
  Company Number: B0624560A

PATIENT
  Sex: Female
  Weight: 2.4 kg

DRUGS (1)
  1. LAMICTAL [Suspect]
     Indication: EPILEPSY

REACTIONS (4)
  - DRUG EXPOSURE DURING PREGNANCY [None]
  - HYDROMETRA [None]
  - PERSISTENT CLOACA [None]
  - PREMATURE BABY [None]
